FAERS Safety Report 6239371-2 (Version None)
Quarter: 2009Q2

REPORT INFORMATION
  Report Type: 
  Country: None (occurrence: None)
  Receive Date: 20090622
  Receipt Date: 20090408
  Transmission Date: 20091009
  Serious: Yes (Hospitalization)
  Sender: FDA-Public Use
  Company Number: TR-ELI_LILLY_AND_COMPANY-TR200906003263

PATIENT
  Age: 77 Year
  Sex: Female

DRUGS (3)
  1. HUMULIN 70/30 [Suspect]
     Indication: DIABETES MELLITUS
     Dosage: 25 IU, EACH MORNING
     Route: 058
  2. HUMULIN 70/30 [Suspect]
     Dosage: 21 IU, EACH EVENING
     Route: 058
  3. DIOVAN HCT [Concomitant]
     Indication: BLOOD PRESSURE
     Dosage: 1 D/F, DAILY (1/D)
     Route: 048

REACTIONS (3)
  - BLOOD PRESSURE INCREASED [None]
  - HYPERGLYCAEMIA [None]
  - URINARY TRACT INFECTION [None]
